FAERS Safety Report 19308942 (Version 1)
Quarter: 2021Q2

REPORT INFORMATION
  Report Type: Spontaneous
  Country: FR (occurrence: FR)
  Receive Date: 20210525
  Receipt Date: 20210525
  Transmission Date: 20210717
  Serious: Yes (Death, Life-Threatening, Hospitalization)
  Sender: FDA-Public Use
  Company Number: FR-BEH-2021131936

PATIENT
  Age: 61 Year
  Sex: Male
  Weight: 104 kg

DRUGS (3)
  1. TRASYLOL [Suspect]
     Active Substance: APROTININ
     Indication: VENTRICULAR ASSIST DEVICE INSERTION
     Dosage: 3 MEGA?INTERNATIONAL UNIT, LOADING DOSE 1 MILLION IU PUMP PRIMING DOSE 1 MILLION IU MAINTENANCE DOSE
     Route: 042
     Dates: start: 20210211, end: 20210211
  2. CONFIDEX [Suspect]
     Active Substance: COAGULATION FACTOR IX HUMAN\COAGULATION FACTOR VII HUMAN\COAGULATION FACTOR X HUMAN\PROTEIN C\PROTEIN S HUMAN\PROTHROMBIN
     Indication: IMPLANTABLE DEFIBRILLATOR INSERTION
     Dosage: 2000 INTERNATIONAL UNIT, TOT
     Route: 042
     Dates: start: 20210211, end: 20210211
  3. CONFIDEX [Suspect]
     Active Substance: COAGULATION FACTOR IX HUMAN\COAGULATION FACTOR VII HUMAN\COAGULATION FACTOR X HUMAN\PROTEIN C\PROTEIN S HUMAN\PROTHROMBIN
     Indication: IMPLANTABLE DEFIBRILLATOR INSERTION
     Dosage: 2000 INTERNATIONAL UNIT, TOT
     Route: 042
     Dates: start: 20210211, end: 20210211

REACTIONS (4)
  - Coronary artery occlusion [Not Recovered/Not Resolved]
  - Cerebrovascular accident [Not Recovered/Not Resolved]
  - Hypoxic-ischaemic encephalopathy [Not Recovered/Not Resolved]
  - Cardiogenic shock [Fatal]

NARRATIVE: CASE EVENT DATE: 20210213
